FAERS Safety Report 14038776 (Version 2)
Quarter: 2018Q2

REPORT INFORMATION
  Report Type: Spontaneous
  Country: DE (occurrence: DE)
  Receive Date: 20171004
  Receipt Date: 20180405
  Transmission Date: 20180711
  Serious: Yes (Hospitalization)
  Sender: FDA-Public Use
  Company Number: DE-TEVA-810435GER

PATIENT
  Age: 75 Year
  Sex: Male
  Weight: 63.8 kg

DRUGS (16)
  1. VITAMIN B6 [Concomitant]
     Active Substance: PYRIDOXINE HYDROCHLORIDE
     Dosage: DAILY DOSE: 1 DF DOSAGE FORM EVERY 3 DAY
     Route: 048
  2. SALBUTAMOL [Concomitant]
     Active Substance: ALBUTEROL
     Dosage: DAILY DOSE: 0.36 MG MILLIGRAM(S) EVERY 2 DAY
     Route: 055
  3. PREGABALIN. [Interacting]
     Active Substance: PREGABALIN
     Dosage: 100 MILLIGRAM DAILY;
  4. VITAMIN B12 [Concomitant]
     Active Substance: CYANOCOBALAMIN
     Dosage: DAILY DOSE: 1 DF DOSAGE FORM EVERY 3 DAY
     Route: 048
  5. ASPIRIN. [Concomitant]
     Active Substance: ASPIRIN
     Dosage: 100 MILLIGRAM DAILY;
     Route: 048
  6. VARDENAFIL [Concomitant]
     Active Substance: VARDENAFIL
     Dosage: AS NEEDED
     Route: 048
  7. COLECALCIFEROL [Concomitant]
     Active Substance: CHOLECALCIFEROL
     Dosage: DAILY DOSE: 1 IU INTERNATIONAL UNIT(S) EVERY WEEK
  8. TILIDIN COMP.  50/4 MG RET. [Interacting]
     Active Substance: NALOXONE HYDROCHLORIDE\TILIDINE HYDROCHLORIDE
     Indication: POST HERPETIC NEURALGIA
     Dosage: 1 DOSAGE FORMS DAILY;
     Route: 048
     Dates: start: 20170724, end: 20170811
  9. METAMIZOL [Interacting]
     Active Substance: METAMIZOLE SODIUM
     Indication: POST HERPETIC NEURALGIA
     Dosage: 1500MG EVERY SECOND DAY
     Route: 048
     Dates: start: 20170717, end: 20170811
  10. METAMIZOL [Interacting]
     Active Substance: METAMIZOLE SODIUM
     Dosage: 9 GRAM DAILY;
     Route: 048
     Dates: start: 20170811, end: 20170814
  11. ACICLOVIR [Suspect]
     Active Substance: ACYCLOVIR
     Dosage: 20000 MILLIGRAM DAILY;
     Route: 048
     Dates: start: 20170704
  12. PREGABALIN. [Concomitant]
     Active Substance: PREGABALIN
     Dosage: 100 MILLIGRAM DAILY;
     Route: 048
  13. ZOPICLON [Interacting]
     Active Substance: ZOPICLONE
     Dosage: 3.75 MILLIGRAM DAILY;
     Route: 048
  14. RAMIPRIL. [Concomitant]
     Active Substance: RAMIPRIL
     Dosage: 5 MILLIGRAM DAILY;
     Route: 048
  15. FOLSAEURE [Concomitant]
     Active Substance: FOLIC ACID
     Dosage: DAILY DOSE: 1 DF DOSAGE FORM EVERY 3 DAY
     Route: 048
  16. PANTOPRAZOLE [Interacting]
     Active Substance: PANTOPRAZOLE
     Dosage: 40 MILLIGRAM DAILY;
     Route: 048

REACTIONS (7)
  - Transaminases increased [Recovering/Resolving]
  - Hepatic cyst [Recovering/Resolving]
  - Cholestasis [Recovering/Resolving]
  - Hepatic enzyme increased [Recovering/Resolving]
  - Food interaction [Recovering/Resolving]
  - Accessory spleen [Recovering/Resolving]
  - Cholelithiasis [Recovering/Resolving]

NARRATIVE: CASE EVENT DATE: 20170801
